FAERS Safety Report 5927130-7 (Version None)
Quarter: 2008Q4

REPORT INFORMATION
  Report Type: 
  Country: None (occurrence: None)
  Receive Date: 20081022
  Receipt Date: 20081009
  Transmission Date: 20090506
  Serious: Yes (Hospitalization, Other)
  Sender: FDA-Public Use
  Company Number: US-AMGEN-US310695

PATIENT
  Sex: Female

DRUGS (7)
  1. ENBREL [Suspect]
     Indication: RHEUMATOID ARTHRITIS
     Route: 058
     Dates: start: 20030301, end: 20050201
  2. PROCRIT [Concomitant]
     Dates: start: 20050627
  3. COREG [Concomitant]
     Dates: start: 20031015
  4. LISINOPRIL [Concomitant]
     Dates: start: 20030312
  5. HYDROCHLOROTHIAZIDE [Concomitant]
     Dates: start: 20030329
  6. PREDNISONE [Concomitant]
     Dates: start: 20050413
  7. LEFLUNOMIDE [Concomitant]
     Route: 048
     Dates: start: 20000401

REACTIONS (5)
  - ANAEMIA [None]
  - ARTHRALGIA [None]
  - INTERVERTEBRAL DISC PROTRUSION [None]
  - PNEUMONIA [None]
  - SARCOIDOSIS [None]
